FAERS Safety Report 9005205 (Version 1)
Quarter: 2013Q1

REPORT INFORMATION
  Report Type: Spontaneous
  Country: US (occurrence: None)
  Receive Date: 20130107
  Receipt Date: 20130107
  Transmission Date: 20140127
  Serious: No
  Sender: FDA-Public Use
  Company Number: None

PATIENT
  Age: 68 Year
  Sex: Female
  Weight: 36.29 kg

DRUGS (1)
  1. SPIRIVA HANDIHALER [Suspect]
     Dosage: 2 PUFFS 1X DAY

REACTIONS (1)
  - Product quality issue [None]
